FAERS Safety Report 10172127 (Version 1)
Quarter: 2014Q2

REPORT INFORMATION
  Report Type: Spontaneous
  Country: PL (occurrence: PL)
  Receive Date: 20140515
  Receipt Date: 20140515
  Transmission Date: 20141212
  Serious: Yes (Hospitalization)
  Sender: FDA-Public Use
  Company Number: PHHY2014PL056896

PATIENT
  Age: 8 Year
  Sex: Female

DRUGS (2)
  1. LEVOCETIRIZINE [Suspect]
     Indication: RHINITIS ALLERGIC
     Dosage: 2.5 MG, DAILY
  2. FLUTICASONE [Concomitant]
     Route: 045

REACTIONS (6)
  - SUNCT syndrome [Recovered/Resolved]
  - Headache [Recovered/Resolved]
  - Trigeminal neuralgia [Unknown]
  - Pain [Unknown]
  - Epilepsy [Unknown]
  - Somnolence [Unknown]
